FAERS Safety Report 16028382 (Version 1)
Quarter: 2019Q1

REPORT INFORMATION
  Report Type: Spontaneous
  Country: JP (occurrence: JP)
  Receive Date: 20190304
  Receipt Date: 20190304
  Transmission Date: 20190418
  Serious: Yes (Death, Other)
  Sender: FDA-Public Use
  Company Number: JP-ROCHE-2273218

PATIENT
  Age: 7 Decade
  Sex: Male

DRUGS (1)
  1. AVASTIN [Suspect]
     Active Substance: BEVACIZUMAB
     Indication: NON-SMALL CELL LUNG CANCER
     Dosage: DOSAGE IS UNCERTAIN.
     Route: 041

REACTIONS (5)
  - Disseminated intravascular coagulation [Fatal]
  - Lymphocyte count decreased [Unknown]
  - Peritonitis [Fatal]
  - White blood cell count decreased [Unknown]
  - Intestinal perforation [Fatal]

NARRATIVE: CASE EVENT DATE: 201808
